FAERS Safety Report 6238698-8 (Version None)
Quarter: 2009Q2

REPORT INFORMATION
  Report Type: 
  Country: None (occurrence: None)
  Receive Date: 20090622
  Receipt Date: 20090610
  Transmission Date: 20091009
  Serious: Yes (Life-Threatening, Disabling)
  Sender: FDA-Public Use
  Company Number: DE-PFIZER INC-2009225034

PATIENT

DRUGS (1)
  1. AROMASIN [Suspect]
     Indication: BREAST CANCER
     Dosage: UNK
     Route: 048
     Dates: start: 20030701, end: 20070601

REACTIONS (4)
  - PAIN [None]
  - SMALL INTESTINE CARCINOMA [None]
  - TENDON RUPTURE [None]
  - TENOSYNOVITIS [None]
